FAERS Safety Report 8978175 (Version 1)
Quarter: 2012Q4

REPORT INFORMATION
  Report Type: 
  Country: US (occurrence: US)
  Receive Date: 20121221
  Receipt Date: 20121221
  Transmission Date: 20130627
  Serious: Yes (Hospitalization)
  Sender: FDA-Public Use
  Company Number: US-AMGEN-USASP2012081898

PATIENT
  Age: 56 Year
  Sex: Male

DRUGS (1)
  1. ENBREL [Suspect]
     Indication: PSORIATIC ARTHROPATHY
     Dosage: 50 mg, qwk
     Dates: start: 20041101, end: 201210

REACTIONS (3)
  - Dyspnoea [Not Recovered/Not Resolved]
  - Biopsy lung [Recovered/Resolved]
  - Bronchitis [Not Recovered/Not Resolved]
